FAERS Safety Report 15657398 (Version 1)
Quarter: 2018Q4

REPORT INFORMATION
  Report Type: Spontaneous
  Country: AT (occurrence: AT)
  Receive Date: 20181126
  Receipt Date: 20181126
  Transmission Date: 20190205
  Serious: Yes (Other)
  Sender: FDA-Public Use
  Company Number: AT-SAKK-2018SA200912AA

PATIENT
  Age: 64 Year
  Sex: Female

DRUGS (5)
  1. LEVOTHYROXINE SODIUM STAT RX [Concomitant]
     Active Substance: LEVOTHYROXINE SODIUM
     Dosage: 1 X TGL.
     Route: 048
  2. OLEOVIT D3 [Concomitant]
     Active Substance: CHOLECALCIFEROL
     Dosage: 30 TROPFENN 1X W?CHENTLICH
     Route: 048
  3. DYDROGESTERONE W/ESTRADIOL [Concomitant]
     Dosage: UNK UNK, UNK
     Route: 048
  4. LOVENOX [Suspect]
     Active Substance: ENOXAPARIN SODIUM
     Indication: FOOT FRACTURE
     Dosage: UNK UNK, UNK
  5. CHLOROCARVACROL [Suspect]
     Active Substance: CHLORCARVACROL
     Indication: PROCTITIS
     Dosage: ABENDS 1 Z?PFCHEN
     Route: 054
     Dates: start: 20180607, end: 20180609

REACTIONS (13)
  - Thirst [Unknown]
  - Tremor [Recovering/Resolving]
  - Intestinal haemorrhage [Unknown]
  - Tension [Recovering/Resolving]
  - Thrombocytopenia [Unknown]
  - Illusion [Recovered/Resolved]
  - Delirium [Recovered/Resolved]
  - Sleep disorder [Recovering/Resolving]
  - Visual impairment [Recovered/Resolved]
  - Proctitis [Unknown]
  - Decreased appetite [Recovering/Resolving]
  - Mental impairment [Recovered/Resolved]
  - Depression [Recovered/Resolved]

NARRATIVE: CASE EVENT DATE: 2018
